FAERS Safety Report 11714129 (Version 3)
Quarter: 2016Q1

REPORT INFORMATION
  Report Type: Spontaneous
  Country: US (occurrence: US)
  Receive Date: 20151109
  Receipt Date: 20160104
  Transmission Date: 20160525
  Serious: Yes (Other)
  Sender: FDA-Public Use
  Company Number: US-PFIZER INC-2015121450

PATIENT
  Age: 41 Year
  Sex: Female

DRUGS (1)
  1. IBRANCE [Suspect]
     Active Substance: PALBOCICLIB
     Indication: BREAST CANCER STAGE IV
     Dosage: 125 MG, CYCLIC (21 DAYS, 7 DAYS OFF)
     Route: 048
     Dates: start: 20150223, end: 20150922

REACTIONS (2)
  - Infection [Unknown]
  - Breast cellulitis [Recovered/Resolved]

NARRATIVE: CASE EVENT DATE: 20150922
